FAERS Safety Report 8889640 (Version 1)
Quarter: 2012Q4

REPORT INFORMATION
  Report Type: 
  Country: GB (occurrence: GB)
  Receive Date: 20121107
  Receipt Date: 20121107
  Transmission Date: 20130627
  Serious: Yes (Hospitalization)
  Sender: FDA-Public Use
  Company Number: PHHY2012GB100068

PATIENT
  Sex: Male

DRUGS (2)
  1. WARFARIN [Suspect]
  2. USTEKINUMAB [Suspect]
     Indication: PSORIASIS
     Dosage: 90 mg
     Route: 058
     Dates: start: 20110801

REACTIONS (3)
  - Protein S deficiency [Unknown]
  - Psoriasis [Unknown]
  - Skin haemorrhage [Unknown]
